APPROVED DRUG PRODUCT: MUPIROCIN
Active Ingredient: MUPIROCIN
Strength: 2%
Dosage Form/Route: OINTMENT;TOPICAL
Application: A090480 | Product #001 | TE Code: AB
Applicant: GLENMARK PHARMACEUTICALS INC USA
Approved: Jun 8, 2011 | RLD: No | RS: No | Type: RX